FAERS Safety Report 16397854 (Version 1)
Quarter: 2019Q2

REPORT INFORMATION
  Report Type: Report from Study
  Country: FR (occurrence: FR)
  Receive Date: 20190606
  Receipt Date: 20190606
  Transmission Date: 20190711
  Serious: Yes (Other)
  Sender: FDA-Public Use
  Company Number: FR-ROCHE-2327032

PATIENT
  Age: 70 Year
  Sex: Female

DRUGS (4)
  1. BEVACIZUMAB. [Suspect]
     Active Substance: BEVACIZUMAB
     Indication: OVARIAN CANCER
     Dosage: ON 09/OCT/2017, SHE RECEIVED LAST DOSE OF  BEVACIZUMAB (10 MG/KG) BEFORE THE EVENT.
     Route: 042
     Dates: start: 20170323
  2. BLINDED ATEZOLIZUMAB [Suspect]
     Active Substance: ATEZOLIZUMAB
     Indication: OVARIAN CANCER
     Dosage: ON 09/OCT/2017, SHE RECEIVED LAST DOSE OF ATEZOLIZUMAB BEFORE THE EVENT.
     Route: 042
     Dates: start: 20170323
  3. DOXORUBICIN [Suspect]
     Active Substance: DOXORUBICIN
     Indication: OVARIAN CANCER
     Dosage: ON 21/AUG/2017, SHE RECEIVED LAST DOSE OF  PEGYLATED LIPOSOMAL DOXORUBICIN (30 MG/M2) BEFORE THE EV
     Route: 042
     Dates: start: 20170323
  4. CARBOPLATIN. [Suspect]
     Active Substance: CARBOPLATIN
     Indication: OVARIAN CANCER
     Dosage: ON 21/AUG/2017, SHE RECEIVED LAST DOSE OF CARBOPLATIN (344 MG) BEFORE THE EVENT.
     Route: 042
     Dates: start: 20170323

REACTIONS (1)
  - Rash [Recovered/Resolved]

NARRATIVE: CASE EVENT DATE: 20171030
